FAERS Safety Report 5633974-1 (Version None)
Quarter: 2008Q1

REPORT INFORMATION
  Report Type: 
  Country: None (occurrence: None)
  Receive Date: 20080219
  Receipt Date: 20080207
  Transmission Date: 20080703
  Serious: Yes (Other)
  Sender: FDA-Public Use
  Company Number: 2008EU000246

PATIENT
  Age: 39 Year
  Sex: Female

DRUGS (2)
  1. VESICARE(SOLIFENACIN) TABLET, UNKNOWN [Suspect]
     Indication: BLADDER DISORDER
     Dosage: UID/QD, ORAL
     Route: 048
     Dates: start: 20071222
  2. SERTRALINE [Concomitant]

REACTIONS (1)
  - PALPITATIONS [None]
